FAERS Safety Report 6596611-8 (Version None)
Quarter: 2010Q1

REPORT INFORMATION
  Report Type: 
  Country: None (occurrence: None)
  Receive Date: 20100222
  Receipt Date: 20100222
  Transmission Date: 20100710
  Serious: Yes (Hospitalization)
  Sender: FDA-Public Use
  Company Number: None

PATIENT
  Age: 87 Year
  Sex: Female

DRUGS (13)
  1. FLUCONAZOLE [Suspect]
     Indication: FUNGAL INFECTION
     Dosage: 100 MG ONCE DAILY PO
     Route: 048
  2. AMARYL [Concomitant]
  3. LOVASTATIN [Concomitant]
  4. VITAMIN B-12 [Concomitant]
  5. ZYRTEC [Concomitant]
  6. LASIX [Concomitant]
  7. ZANTAC [Concomitant]
  8. MIRAPEX [Concomitant]
  9. POTASSIUM CHLORIDE [Concomitant]
  10. LEVOTHYROXINE [Concomitant]
  11. KEPPRA [Concomitant]
  12. NEXIUM [Concomitant]
  13. DIFLUCAN [Concomitant]

REACTIONS (7)
  - ACUTE GENERALISED EXANTHEMATOUS PUSTULOSIS [None]
  - BLISTER [None]
  - BRONCHITIS [None]
  - PURULENCE [None]
  - RASH ERYTHEMATOUS [None]
  - SKIN EXFOLIATION [None]
  - STEVENS-JOHNSON SYNDROME [None]
